FAERS Safety Report 12997043 (Version 1)
Quarter: 2016Q4

REPORT INFORMATION
  Report Type: Spontaneous
  Country: US (occurrence: US)
  Receive Date: 20161205
  Receipt Date: 20161205
  Transmission Date: 20170207
  Serious: Yes (Hospitalization)
  Sender: FDA-Public Use
  Company Number: US-ACCORD-046046

PATIENT
  Age: 62 Year
  Sex: Male

DRUGS (3)
  1. ALLOPURINOL. [Suspect]
     Active Substance: ALLOPURINOL
     Indication: GOUT
     Dosage: TOTAL DOSE OF 1200 MG INSTEAD OF 300 MG DAILY
  2. METOPROLOL. [Concomitant]
     Active Substance: METOPROLOL
  3. ACETYLSALICYLIC ACID [Concomitant]
     Active Substance: ASPIRIN

REACTIONS (3)
  - Drug administration error [Unknown]
  - Accidental overdose [Unknown]
  - Drug reaction with eosinophilia and systemic symptoms [Recovering/Resolving]
